FAERS Safety Report 9653162 (Version 3)
Quarter: 2013Q4

REPORT INFORMATION
  Report Type: Spontaneous
  Country: JP (occurrence: JP)
  Receive Date: 20131029
  Receipt Date: 20131210
  Transmission Date: 20140711
  Serious: Yes (Other)
  Sender: FDA-Public Use
  Company Number: JP-PFIZER INC-2013308621

PATIENT
  Age: 58 Year
  Sex: Male

DRUGS (2)
  1. LIPITOR [Suspect]
     Indication: DYSLIPIDAEMIA
     Dosage: 5 MG, 1X/DAY
     Route: 048
     Dates: start: 2008, end: 20131018
  2. TRICOR [Suspect]
     Dosage: 80 MG, DAILY
     Route: 048
     Dates: start: 20130904, end: 20131018

REACTIONS (1)
  - Hypoaesthesia [Unknown]
